FAERS Safety Report 9173423 (Version 1)
Quarter: 2013Q1

REPORT INFORMATION
  Report Type: Spontaneous
  Country: US (occurrence: None)
  Receive Date: 20130318
  Receipt Date: 20130318
  Transmission Date: 20140127
  Serious: Yes (Other)
  Sender: FDA-Public Use
  Company Number: ACO_34780_2013

PATIENT
  Sex: Male
  Weight: 90.7 kg

DRUGS (4)
  1. AMPYRA [Suspect]
     Indication: GAIT DISTURBANCE
     Route: 048
     Dates: start: 201003
  2. BETASERON (ALBUMIN HUMAN, GLUCOSE, IINTERFERON BETA) [Concomitant]
  3. HYDROCODONE (HYDROCODONE BITARTRATE) [Concomitant]
  4. ZOLOFT (SERTRALINE HYDROCHLORIDE) [Concomitant]

REACTIONS (2)
  - Convulsion [None]
  - Fall [None]
